FAERS Safety Report 7067686-7 (Version None)
Quarter: 2010Q4

REPORT INFORMATION
  Report Type: 
  Country: None (occurrence: None)
  Receive Date: 20101028
  Receipt Date: 20101015
  Transmission Date: 20110411
  Serious: Yes (Hospitalization, Other)
  Sender: FDA-Public Use
  Company Number: PHFR2010GB04180

PATIENT
  Sex: Female
  Weight: 30 kg

DRUGS (2)
  1. EXJADE [Suspect]
     Indication: IRON OVERLOAD
     Dosage: 625 MG, BID
     Route: 048
     Dates: start: 20100201, end: 20100901
  2. FOLIC ACID [Concomitant]
     Dosage: 5 MG, QD
     Route: 048

REACTIONS (2)
  - DUODENAL ULCER [None]
  - GASTRIC ULCER [None]
